FAERS Safety Report 14552411 (Version 1)
Quarter: 2018Q1

REPORT INFORMATION
  Report Type: Spontaneous
  Country: US (occurrence: US)
  Receive Date: 20180216
  Receipt Date: 20180216
  Transmission Date: 20180509
  Serious: No
  Sender: FDA-Public Use
  Company Number: None

PATIENT
  Age: 96 Year
  Sex: Male

DRUGS (19)
  1. FERROUS SULFATE. [Concomitant]
     Active Substance: FERROUS SULFATE
  2. DULCOLAX NOS [Concomitant]
     Active Substance: BISACODYL OR DOCUSATE SODIUM
  3. TYLENOL [Concomitant]
     Active Substance: ACETAMINOPHEN
  4. POLYETHYLENE GLYCOL [Concomitant]
     Active Substance: POLYETHYLENE GLYCOLS
  5. MONTELUKAST SODIUM. [Concomitant]
     Active Substance: MONTELUKAST SODIUM
  6. FINASTERIDE. [Concomitant]
     Active Substance: FINASTERIDE
  7. OXYCODONE-ACETAMINOPHEN [Concomitant]
     Active Substance: ACETAMINOPHEN\OXYCODONE HYDROCHLORIDE
  8. ZYTIGA [Suspect]
     Active Substance: ABIRATERONE ACETATE
     Indication: PROSTATE CANCER
     Route: 048
     Dates: start: 20170705
  9. LUPRON [Concomitant]
     Active Substance: LEUPROLIDE ACETATE
  10. BICALUTAMIDE. [Concomitant]
     Active Substance: BICALUTAMIDE
  11. OLOPATASINE HCI [Concomitant]
  12. METHASINE HCI [Concomitant]
  13. LIDOCAINE. [Concomitant]
     Active Substance: LIDOCAINE
  14. GABAPENTIN. [Concomitant]
     Active Substance: GABAPENTIN
  15. SENNA [Concomitant]
     Active Substance: SENNA LEAF\SENNOSIDES\SENNOSIDES A AND B
  16. ASPIRIN. [Concomitant]
     Active Substance: ASPIRIN
  17. LOSARTAN POTASSIUM. [Concomitant]
     Active Substance: LOSARTAN POTASSIUM
  18. LIDINOPRIL [Concomitant]
  19. TAMSULOSIN HCI [Concomitant]

REACTIONS (2)
  - Prostatic specific antigen increased [None]
  - Peripheral swelling [None]
